FAERS Safety Report 6669082-0 (Version None)
Quarter: 2010Q2

REPORT INFORMATION
  Report Type: 
  Country: None (occurrence: None)
  Receive Date: 20100406
  Receipt Date: 20100326
  Transmission Date: 20101027
  Serious: Yes (Other)
  Sender: FDA-Public Use
  Company Number: US-JNJFOC-20100109960

PATIENT
  Sex: Female
  Weight: 67.59 kg

DRUGS (2)
  1. SIMPONI [Suspect]
     Indication: RHEUMATOID ARTHRITIS
     Route: 058
  2. ORENCIA [Suspect]
     Indication: RHEUMATOID ARTHRITIS
     Route: 042

REACTIONS (9)
  - ABNORMAL LOSS OF WEIGHT [None]
  - ARTHRALGIA [None]
  - HYPOAESTHESIA [None]
  - HYPOTHYROIDISM [None]
  - INAPPROPRIATE SCHEDULE OF DRUG ADMINISTRATION [None]
  - INFLUENZA [None]
  - MIGRAINE [None]
  - PARAESTHESIA [None]
  - VOMITING [None]
